FAERS Safety Report 8326481-9 (Version None)
Quarter: 2012Q2

REPORT INFORMATION
  Report Type: 
  Country: None (occurrence: None)
  Receive Date: 20120501
  Receipt Date: 20120425
  Transmission Date: 20120825
  Serious: Yes (Other)
  Sender: FDA-Public Use
  Company Number: DE-PFIZER INC-2012017677

PATIENT
  Age: 61 Year
  Sex: Male
  Weight: 92 kg

DRUGS (4)
  1. ATORVASTATIN CALCIUM [Suspect]
     Dosage: 20 MG, UNK
     Dates: start: 20090101
  2. ATORVASTATIN CALCIUM [Suspect]
     Dosage: 10 MG, UNK
     Dates: start: 20020101
  3. BISOPROLOL FUMARATE [Concomitant]
     Dosage: 2.5 MG, DAILY
     Dates: start: 20080101
  4. ASPIRIN [Concomitant]
     Dosage: 100 MG, DAILY

REACTIONS (5)
  - COPPER DEFICIENCY [None]
  - ROSACEA [None]
  - MUSCULAR WEAKNESS [None]
  - DEMYELINATING POLYNEUROPATHY [None]
  - NEUROPATHY PERIPHERAL [None]
